FAERS Safety Report 6162732-7 (Version None)
Quarter: 2009Q2

REPORT INFORMATION
  Report Type: 
  Country: None (occurrence: None)
  Receive Date: 20090421
  Receipt Date: 20080409
  Transmission Date: 20091009
  Serious: No
  Sender: FDA-Public Use
  Company Number: US-ASTRAZENECA-2008UW07128

PATIENT
  Age: 930 Month
  Sex: Male

DRUGS (5)
  1. TOPROL-XL [Suspect]
     Indication: BLOOD PRESSURE
     Route: 048
  2. VASOTEC [Concomitant]
  3. AVODART [Concomitant]
  4. ALEVE [Concomitant]
  5. LANTUS [Concomitant]

REACTIONS (1)
  - BLOOD GLUCOSE FLUCTUATION [None]
